FAERS Safety Report 12945051 (Version 3)
Quarter: 2016Q4

REPORT INFORMATION
  Report Type: Spontaneous
  Country: RU (occurrence: RU)
  Receive Date: 20161115
  Receipt Date: 20161208
  Transmission Date: 20170207
  Serious: Yes (Death, Other)
  Sender: FDA-Public Use
  Company Number: RU-BRISTOL-MYERS SQUIBB COMPANY-BMS-2016-095340

PATIENT
  Age: 53 Year
  Sex: Male

DRUGS (8)
  1. ASPARAGINASE [Suspect]
     Active Substance: ASPARAGINASE
     Indication: CHRONIC MYELOID LEUKAEMIA
     Dosage: 17000 U ON 7TH AND 9TH DAY
     Route: 030
  2. SPRYCEL [Suspect]
     Active Substance: DASATINIB
     Indication: CHRONIC MYELOID LEUKAEMIA
     Dosage: 100 MG, QD
     Route: 048
     Dates: start: 20160630, end: 20160920
  3. SPRYCEL [Suspect]
     Active Substance: DASATINIB
     Indication: BLAST CELL CRISIS
     Route: 065
  4. METHOTREXATE. [Suspect]
     Active Substance: METHOTREXATE
     Indication: CHRONIC MYELOID LEUKAEMIA
     Dosage: 870 MG ON 7TH AND 9TH DAY
     Route: 042
  5. METHOTREXATE. [Suspect]
     Active Substance: METHOTREXATE
     Indication: BLAST CELL CRISIS
     Route: 065
  6. MERCAPTOPURINE. [Suspect]
     Active Substance: MERCAPTOPURINE
     Indication: CHRONIC MYELOID LEUKAEMIA
     Dosage: 43 MG, QD
     Route: 048
  7. ASPARAGINASE [Suspect]
     Active Substance: ASPARAGINASE
     Indication: BLAST CELL CRISIS
     Route: 065
  8. MERCAPTOPURINE. [Suspect]
     Active Substance: MERCAPTOPURINE
     Indication: BLAST CELL CRISIS
     Route: 065

REACTIONS (6)
  - Hypotension [Unknown]
  - Agranulocytosis [Unknown]
  - Fungal infection [Unknown]
  - Sepsis [Fatal]
  - Gastrointestinal necrosis [Unknown]
  - Multiple organ dysfunction syndrome [Unknown]

NARRATIVE: CASE EVENT DATE: 20160920
